FAERS Safety Report 5310224-7 (Version None)
Quarter: 2007Q2

REPORT INFORMATION
  Report Type: 
  Country: None (occurrence: None)
  Receive Date: 20070427
  Receipt Date: 20070419
  Transmission Date: 20071010
  Serious: Yes (Other)
  Sender: FDA-Public Use
  Company Number: JP-ROCHE-489775

PATIENT
  Age: 13 Year
  Sex: Male
  Weight: 40 kg

DRUGS (6)
  1. TAMIFLU [Suspect]
     Route: 048
     Dates: start: 20070223, end: 20070223
  2. CLARITHROMYCIN [Concomitant]
     Route: 048
     Dates: start: 20070222, end: 20070226
  3. ONON [Concomitant]
     Route: 048
     Dates: start: 20070222, end: 20070226
  4. MUCODYNE [Concomitant]
     Route: 048
     Dates: start: 20070222, end: 20070226
  5. ASVERIN [Concomitant]
     Route: 048
     Dates: start: 20070222, end: 20070226
  6. CALONAL [Concomitant]
     Route: 048

REACTIONS (1)
  - PSYCHIATRIC SYMPTOM [None]
